FAERS Safety Report 19969752 (Version 1)
Quarter: 2021Q4

REPORT INFORMATION
  Report Type: Spontaneous
  Country: US (occurrence: US)
  Receive Date: 20211019
  Receipt Date: 20211019
  Transmission Date: 20220303
  Serious: Yes (Other)
  Sender: FDA-Public Use
  Company Number: US-TAKEDA-2021TUS062117

PATIENT
  Sex: Female
  Weight: 60 kg

DRUGS (14)
  1. GATTEX [Suspect]
     Active Substance: TEDUGLUTIDE\WATER
     Indication: Short-bowel syndrome
     Dosage: 2.9 MILLIGRAM
     Route: 051
     Dates: start: 20200603
  2. GATTEX [Suspect]
     Active Substance: TEDUGLUTIDE\WATER
     Indication: Short-bowel syndrome
     Dosage: 2.9 MILLIGRAM
     Route: 051
     Dates: start: 20200603
  3. GATTEX [Suspect]
     Active Substance: TEDUGLUTIDE\WATER
     Indication: Short-bowel syndrome
     Dosage: 2.9 MILLIGRAM
     Route: 051
     Dates: start: 20200603
  4. GATTEX [Suspect]
     Active Substance: TEDUGLUTIDE\WATER
     Indication: Short-bowel syndrome
     Dosage: 2.9 MILLIGRAM
     Route: 051
     Dates: start: 20200603
  5. AMITRIPTYLINE [Concomitant]
     Active Substance: AMITRIPTYLINE
  6. HYOSCYAMINE SULFATE [Concomitant]
     Active Substance: HYOSCYAMINE SULFATE
  7. KEPPRA [Concomitant]
     Active Substance: LEVETIRACETAM
  8. VITAMIN B [Concomitant]
     Active Substance: VITAMIN B
  9. STELARA [Concomitant]
     Active Substance: USTEKINUMAB
  10. DOXYCYCLINE [Concomitant]
     Active Substance: DOXYCYCLINE
  11. CLONIDINE [Concomitant]
     Active Substance: CLONIDINE
  12. HYDROCORTISONE [Concomitant]
     Active Substance: HYDROCORTISONE
  13. HYOSCYAMINE SULFATE [Concomitant]
     Active Substance: HYOSCYAMINE SULFATE
  14. SALINE [Concomitant]
     Active Substance: SODIUM CHLORIDE

REACTIONS (2)
  - Fluid replacement [Unknown]
  - Exposure during pregnancy [Unknown]
